FAERS Safety Report 6392014-X (Version None)
Quarter: 2009Q4

REPORT INFORMATION
  Report Type: 
  Country: None (occurrence: None)
  Receive Date: 20091007
  Receipt Date: 20090928
  Transmission Date: 20100525
  Serious: Yes (Other)
  Sender: FDA-Public Use
  Company Number: US-ROCHE-659174

PATIENT
  Age: 93 Year
  Sex: Female

DRUGS (2)
  1. BONIVA [Suspect]
     Indication: OSTEOPOROSIS
     Dosage: TAKEN FOR MANY YEARS
     Route: 048
     Dates: end: 20090801
  2. ADVAIR DISKUS 100/50 [Concomitant]

REACTIONS (2)
  - DRUG DOSE OMISSION [None]
  - MYOCARDIAL INFARCTION [None]
